FAERS Safety Report 11496315 (Version 1)
Quarter: 2015Q3

REPORT INFORMATION
  Report Type: Spontaneous
  Country: GB (occurrence: GB)
  Receive Date: 20150911
  Receipt Date: 20150911
  Transmission Date: 20151125
  Serious: Yes (Other)
  Sender: FDA-Public Use
  Company Number: GB-GLAXOSMITHKLINE-GB2014028100

PATIENT

DRUGS (3)
  1. BECOTIDE [Concomitant]
     Active Substance: BECLOMETHASONE DIPROPIONATE
  2. SALBUTAMOL [Concomitant]
     Active Substance: ALBUTEROL
  3. ACICLOVIR [Suspect]
     Active Substance: ACYCLOVIR
     Indication: ORAL INFECTION
     Dosage: 5 ML, 5 TIMES DAILY
     Route: 048
     Dates: start: 20141108, end: 20141114

REACTIONS (5)
  - Insomnia [Recovering/Resolving]
  - Paranoid personality disorder [Recovering/Resolving]
  - Hallucination [Recovering/Resolving]
  - Aggression [Recovering/Resolving]
  - Mood altered [Recovering/Resolving]

NARRATIVE: CASE EVENT DATE: 201411
